FAERS Safety Report 13738881 (Version 1)
Quarter: 2017Q3

REPORT INFORMATION
  Report Type: Spontaneous
  Country: US (occurrence: US)
  Receive Date: 20170710
  Receipt Date: 20170710
  Transmission Date: 20171127
  Serious: Yes (Hospitalization, Other)
  Sender: FDA-Public Use
  Company Number: US-SAOL THERAPEUTICS-2017SAO00842

PATIENT
  Age: 30 Year
  Sex: Male
  Weight: 99.77 kg

DRUGS (8)
  1. NUVIGIL [Concomitant]
     Active Substance: ARMODAFINIL
  2. ULTRAM [Concomitant]
     Active Substance: TRAMADOL HYDROCHLORIDE
  3. VITAMIN D3 [Concomitant]
     Active Substance: CHOLECALCIFEROL
  4. CYMBALTA [Concomitant]
     Active Substance: DULOXETINE HYDROCHLORIDE
  5. COLACE [Concomitant]
     Active Substance: DOCUSATE SODIUM
  6. RITALIN [Concomitant]
     Active Substance: METHYLPHENIDATE HYDROCHLORIDE
  7. LIORESAL [Suspect]
     Active Substance: BACLOFEN
     Dosage: 50.03 ?G, \DAY
     Route: 037
     Dates: start: 20170405
  8. NORCO [Concomitant]
     Active Substance: ACETAMINOPHEN\HYDROCODONE BITARTRATE

REACTIONS (4)
  - Nausea [Recovered/Resolved]
  - Muscle spasticity [None]
  - Vomiting [Recovered/Resolved]
  - Implant site infection [Unknown]

NARRATIVE: CASE EVENT DATE: 20170409
